FAERS Safety Report 12249982 (Version 1)
Quarter: 2016Q2

REPORT INFORMATION
  Report Type: Report from Study
  Country: CA (occurrence: CA)
  Receive Date: 20160408
  Receipt Date: 20160408
  Transmission Date: 20160815
  Serious: Yes (Other)
  Sender: FDA-Public Use
  Company Number: CA-JNJFOC-20160404771

PATIENT
  Age: 17 Year
  Sex: Female
  Weight: 52 kg

DRUGS (5)
  1. REMICADE [Suspect]
     Active Substance: INFLIXIMAB
     Indication: CROHN^S DISEASE
     Dosage: 19 TH INFUSION
     Route: 042
     Dates: start: 20160404
  2. FOLIC ACID. [Concomitant]
     Active Substance: FOLIC ACID
     Route: 065
  3. METHOTREXATE [Concomitant]
     Active Substance: METHOTREXATE
     Route: 065
  4. REMICADE [Suspect]
     Active Substance: INFLIXIMAB
     Indication: CROHN^S DISEASE
     Route: 042
     Dates: start: 20140310
  5. IRON [Concomitant]
     Active Substance: IRON
     Route: 065

REACTIONS (5)
  - Skin abrasion [Unknown]
  - Fall [Unknown]
  - Off label use [Unknown]
  - Ligament rupture [Unknown]
  - Product use issue [Unknown]

NARRATIVE: CASE EVENT DATE: 20140310
